FAERS Safety Report 24191635 (Version 2)
Quarter: 2024Q3

REPORT INFORMATION
  Report Type: Report from Study
  Country: US (occurrence: US)
  Receive Date: 20240808
  Receipt Date: 20240919
  Transmission Date: 20241016
  Serious: Yes (Hospitalization, Other)
  Sender: ABBVIE
  Company Number: US-ABBVIE-5871124

PATIENT
  Sex: Female
  Weight: 78.471 kg

DRUGS (2)
  1. CREON [Suspect]
     Active Substance: PANCRELIPASE AMYLASE\PANCRELIPASE LIPASE\PANCRELIPASE PROTEASE
     Indication: Pancreatic failure
     Dosage: FORM STRENGTH: 24000 UNIT
     Route: 048
     Dates: start: 2009
  2. INSULIN NOS [Suspect]
     Active Substance: INSULIN NOS
     Indication: Product used for unknown indication
     Dosage: OVERDOSE
     Route: 065

REACTIONS (16)
  - Coma [Recovered/Resolved]
  - Fall [Recovered/Resolved]
  - Memory impairment [Not Recovered/Not Resolved]
  - Sepsis [Recovered/Resolved]
  - Spinal column injury [Not Recovered/Not Resolved]
  - Transient ischaemic attack [Recovered/Resolved]
  - Gait disturbance [Recovering/Resolving]
  - Pneumonia [Recovered/Resolved]
  - Blood glucose decreased [Recovered/Resolved]
  - Fall [Unknown]
  - Syncope [Recovered/Resolved]
  - Balance disorder [Not Recovered/Not Resolved]
  - Accidental overdose [Unknown]
  - Intervertebral disc displacement [Not Recovered/Not Resolved]
  - Apnoea [Unknown]
  - Device malfunction [Unknown]

NARRATIVE: CASE EVENT DATE: 20120101
